FAERS Safety Report 9882267 (Version 1)
Quarter: 2014Q1

REPORT INFORMATION
  Report Type: Spontaneous
  Country: FR (occurrence: FR)
  Receive Date: 20140207
  Receipt Date: 20140207
  Transmission Date: 20141002
  Serious: Yes (Other)
  Sender: FDA-Public Use
  Company Number: FR-BAYER-2014-017259

PATIENT
  Sex: Male

DRUGS (3)
  1. NEXAVAR [Suspect]
     Dosage: UNK
  2. NEXAVAR [Suspect]
     Dosage: REDUCED DOSE
  3. NEXAVAR [Suspect]
     Dosage: INCREASED DOSE

REACTIONS (2)
  - Hepatic encephalopathy [None]
  - Hepatic cirrhosis [None]
